FAERS Safety Report 20115906 (Version 24)
Quarter: 2023Q2

REPORT INFORMATION
  Report Type: Spontaneous
  Country: CA (occurrence: CA)
  Receive Date: 20211126
  Receipt Date: 20230517
  Transmission Date: 20230722
  Serious: Yes (Other)
  Sender: FDA-Public Use
  Company Number: CA-CELLTRION INC.-2020CA022881

PATIENT

DRUGS (28)
  1. INFLECTRA [Suspect]
     Active Substance: INFLIXIMAB-DYYB
     Indication: Crohn^s disease
     Dosage: 300 MG (5 MG/KG AT 0, 2, 6 THEN EVERY 8 WEEKS)
     Route: 042
     Dates: start: 20200528
  2. INFLECTRA [Suspect]
     Active Substance: INFLIXIMAB-DYYB
     Dosage: 300 MG (5 MG/KG AT 0, 2, 6 THEN EVERY 8 WEEKS)
     Route: 042
     Dates: start: 20200528, end: 20220309
  3. INFLECTRA [Suspect]
     Active Substance: INFLIXIMAB-DYYB
     Dosage: 300 MG (5 MG/KG AT 0, 2, 6 THEN EVERY 8 WEEKS)
     Route: 042
     Dates: start: 20200611
  4. INFLECTRA [Suspect]
     Active Substance: INFLIXIMAB-DYYB
     Dosage: 300 MG (5 MG/KG AT 0, 2, 6 THEN EVERY 8 WEEKS)
     Route: 042
     Dates: start: 20200716
  5. INFLECTRA [Suspect]
     Active Substance: INFLIXIMAB-DYYB
     Dosage: 300 MG (5 MG/KG AT 0, 2, 6 THEN EVERY 8 WEEKS)
     Route: 042
     Dates: start: 20200908
  6. INFLECTRA [Suspect]
     Active Substance: INFLIXIMAB-DYYB
     Dosage: 300 MG (5 MG/KG AT 0, 2, 6 THEN EVERY 8 WEEKS)
     Route: 042
     Dates: start: 20201102
  7. INFLECTRA [Suspect]
     Active Substance: INFLIXIMAB-DYYB
     Dosage: 300 MG (5 MG/KG AT 0, 2, 6 THEN EVERY 8 WEEKS)
     Route: 042
     Dates: start: 20210428
  8. INFLECTRA [Suspect]
     Active Substance: INFLIXIMAB-DYYB
     Dosage: 300 MG (5 MG/KG AT 0, 2, 6 THEN EVERY 8 WEEKS)
     Route: 042
     Dates: start: 20210708
  9. INFLECTRA [Suspect]
     Active Substance: INFLIXIMAB-DYYB
     Dosage: 300 MG (5 MG/KG AT 0, 2, 6 THEN EVERY 8 WEEKS)
     Route: 042
     Dates: start: 20210909, end: 20210909
  10. INFLECTRA [Suspect]
     Active Substance: INFLIXIMAB-DYYB
     Dosage: 300 MG (5 MG/KG AT 0, 2, 6 THEN EVERY 8 WEEKS)
     Route: 042
     Dates: start: 20211108
  11. INFLECTRA [Suspect]
     Active Substance: INFLIXIMAB-DYYB
     Dosage: 300 MG (5 MG/KG AT 0, 2, 6 THEN EVERY 8 WEEKS)
     Route: 042
     Dates: start: 20220112
  12. INFLECTRA [Suspect]
     Active Substance: INFLIXIMAB-DYYB
     Dosage: 300 MG (5 MG/KG AT 0, 2, 6 THEN EVERY 8 WEEKS)
     Route: 042
     Dates: start: 20220309
  13. INFLECTRA [Suspect]
     Active Substance: INFLIXIMAB-DYYB
     Dosage: 10 MG/KG, EVERY 4 WEEKS
     Route: 042
     Dates: start: 20220419
  14. INFLECTRA [Suspect]
     Active Substance: INFLIXIMAB-DYYB
     Dosage: 500 MG, EVERY 4 WEEK
     Route: 042
     Dates: start: 20220419
  15. INFLECTRA [Suspect]
     Active Substance: INFLIXIMAB-DYYB
     Dosage: 500 MG, EVERY 4 WEEK
     Route: 042
     Dates: start: 20220527
  16. INFLECTRA [Suspect]
     Active Substance: INFLIXIMAB-DYYB
     Dosage: 500 MG, EVERY 4 WEEK
     Route: 042
     Dates: start: 20220624
  17. INFLECTRA [Suspect]
     Active Substance: INFLIXIMAB-DYYB
     Dosage: 500 MG, EVERY 4 WEEK
     Route: 042
     Dates: start: 20220728
  18. INFLECTRA [Suspect]
     Active Substance: INFLIXIMAB-DYYB
     Dosage: 500 MG, EVERY 4 WEEK
     Route: 042
     Dates: start: 20220819
  19. INFLECTRA [Suspect]
     Active Substance: INFLIXIMAB-DYYB
     Dosage: 500 MG, EVERY 4 WEEK
     Route: 042
     Dates: start: 20220923
  20. INFLECTRA [Suspect]
     Active Substance: INFLIXIMAB-DYYB
     Dosage: 500 MG, EVERY 4 WEEK
     Route: 042
     Dates: start: 20221020
  21. INFLECTRA [Suspect]
     Active Substance: INFLIXIMAB-DYYB
     Dosage: 500 MG, 5 WEEKS AND 5 DAYS AFTER LAST INFUSION, PRESCRIBED INFUSIONS ARE EVERY 4 WEEKS
     Route: 042
     Dates: start: 20221129
  22. INFLECTRA [Suspect]
     Active Substance: INFLIXIMAB-DYYB
     Dosage: 500 MG, EVERY 4 WEEK
     Route: 042
     Dates: start: 20230124
  23. INFLECTRA [Suspect]
     Active Substance: INFLIXIMAB-DYYB
     Dosage: 500 MG, EVERY 4 WEEK
     Route: 042
     Dates: start: 20230321
  24. CIPROFLOXACIN [Concomitant]
     Active Substance: CIPROFLOXACIN
     Indication: Anal abscess
     Dosage: 500 MG, 1X/DAY
     Route: 048
  25. ENTOCORT [Concomitant]
     Active Substance: BUDESONIDE
     Dosage: 2 MONTHS
  26. ENTOCORT [Concomitant]
     Active Substance: BUDESONIDE
     Dosage: 3 MONTHS
  27. ENTOCORT [Concomitant]
     Active Substance: BUDESONIDE
     Dosage: 1 DF
     Route: 065
  28. METRONIDAZOLE [Concomitant]
     Active Substance: METRONIDAZOLE
     Indication: Anal abscess
     Dosage: 500 MG, 2X/DAY
     Route: 048

REACTIONS (36)
  - Abortion [Unknown]
  - Arthralgia [Not Recovered/Not Resolved]
  - Therapeutic response shortened [Unknown]
  - Drug level decreased [Not Recovered/Not Resolved]
  - Drug intolerance [Unknown]
  - Pain [Not Recovered/Not Resolved]
  - Movement disorder [Not Recovered/Not Resolved]
  - Anxiety [Recovering/Resolving]
  - Eructation [Not Recovered/Not Resolved]
  - Folliculitis [Recovered/Resolved]
  - Gait inability [Unknown]
  - Hyperhidrosis [Unknown]
  - Lethargy [Not Recovered/Not Resolved]
  - Malaise [Unknown]
  - Oral herpes [Recovered/Resolved]
  - Feeling abnormal [Unknown]
  - Heart rate irregular [Not Recovered/Not Resolved]
  - Palpitations [Not Recovered/Not Resolved]
  - Sleep disorder [Unknown]
  - Muscle spasms [Not Recovered/Not Resolved]
  - Fistula [Unknown]
  - Rash [Recovered/Resolved]
  - Condition aggravated [Recovered/Resolved]
  - Pustule [Unknown]
  - Hypersensitivity [Unknown]
  - Illness [Unknown]
  - Peripheral swelling [Not Recovered/Not Resolved]
  - Joint swelling [Unknown]
  - Rash erythematous [Not Recovered/Not Resolved]
  - Tinea infection [Not Recovered/Not Resolved]
  - Pain in extremity [Not Recovered/Not Resolved]
  - Off label use [Unknown]
  - Inappropriate schedule of product administration [Unknown]
  - Off label use [Unknown]
  - Intentional product use issue [Unknown]
  - Maternal exposure during pregnancy [Unknown]

NARRATIVE: CASE EVENT DATE: 20200530
